FAERS Safety Report 12478072 (Version 1)
Quarter: 2016Q2

REPORT INFORMATION
  Report Type: Other
  Country: US (occurrence: US)
  Receive Date: 20160617
  Receipt Date: 20160617
  Transmission Date: 20160815
  Serious: Yes (Other)
  Sender: FDA-Public Use
  Company Number: US-VALU MERCHANDISERS COMPANY-1053977

PATIENT
  Age: 51 Year
  Sex: Female
  Weight: 106.82 kg

DRUGS (2)
  1. ACETAMINOPHEN AND DIPHENHYDRAMINE HYDROCHLORIDE [Suspect]
     Active Substance: ACETAMINOPHEN\DIPHENHYDRAMINE HYDROCHLORIDE
     Route: 048
     Dates: start: 20160514, end: 20160515
  2. BEST CHOICE ACETAMINOPHEN PM GELTAB [Suspect]
     Active Substance: ACETAMINOPHEN\DIPHENHYDRAMINE HYDROCHLORIDE
     Indication: ANALGESIC THERAPY
     Route: 048
     Dates: start: 20160514, end: 20160515

REACTIONS (7)
  - Medication error [Recovered/Resolved]
  - Wrong drug administered [None]
  - Impaired work ability [None]
  - Pain [None]
  - Overdose [None]
  - Confusional state [None]
  - Musculoskeletal disorder [None]

NARRATIVE: CASE EVENT DATE: 20160514
